FAERS Safety Report 7814809-5 (Version None)
Quarter: 2011Q4

REPORT INFORMATION
  Report Type: 
  Country: None (occurrence: None)
  Receive Date: 20111013
  Receipt Date: 20111013
  Transmission Date: 20120403
  Serious: Yes (Disabling)
  Sender: FDA-Public Use
  Company Number: None

PATIENT
  Age: 81 Year
  Sex: Female
  Weight: 67.1324 kg

DRUGS (1)
  1. CLINDAMYCIN [Suspect]
     Indication: CELLULITIS
     Dosage: 300 MG EVERY 6 HRS. ORALLY
     Route: 048
     Dates: start: 20110814, end: 20110821

REACTIONS (5)
  - CONFUSIONAL STATE [None]
  - FATIGUE [None]
  - DIZZINESS [None]
  - ACTIVITIES OF DAILY LIVING IMPAIRED [None]
  - PRODUCT QUALITY ISSUE [None]
